FAERS Safety Report 11369500 (Version 1)
Quarter: 2015Q3

REPORT INFORMATION
  Report Type: Spontaneous
  Country: US (occurrence: US)
  Receive Date: 20150812
  Receipt Date: 20150812
  Transmission Date: 20151125
  Serious: No
  Sender: FDA-Public Use
  Company Number: US-JNJFOC-20150411054

PATIENT
  Age: 20 Year
  Sex: Female

DRUGS (7)
  1. FLUVOXAMINE [Concomitant]
     Active Substance: FLUVOXAMINE
     Indication: ANXIETY
     Route: 065
  2. FLUVOXAMINE [Concomitant]
     Active Substance: FLUVOXAMINE
     Indication: IRRITABILITY
     Route: 065
  3. ETHINYLESTRADIOL [Concomitant]
     Active Substance: ETHINYL ESTRADIOL
     Indication: MENSTRUAL CYCLE MANAGEMENT
     Route: 065
  4. METFORMIN [Concomitant]
     Active Substance: METFORMIN HYDROCHLORIDE
     Indication: INSULIN RESISTANCE
     Route: 065
  5. NORGESTIMATE [Concomitant]
     Active Substance: NORGESTIMATE
     Indication: MENSTRUAL CYCLE MANAGEMENT
     Route: 065
  6. TOPIRAMATE. [Suspect]
     Active Substance: TOPIRAMATE
     Indication: AUTISM SPECTRUM DISORDER
     Dosage: INCREASED IN 25 MG INCREMENTS EACH WEEK TO A MAXIMUM DAILY DOSE OF 400 MG DIVIDED B.I.D.
     Route: 048
  7. FLUVOXAMINE [Concomitant]
     Active Substance: FLUVOXAMINE
     Indication: DYSPHORIA
     Route: 065

REACTIONS (3)
  - Weight decreased [Unknown]
  - Product use issue [Unknown]
  - Decreased appetite [Unknown]
